FAERS Safety Report 7745389-0 (Version None)
Quarter: 2011Q3

REPORT INFORMATION
  Report Type: 
  Country: None (occurrence: None)
  Receive Date: 20110826
  Receipt Date: 20110819
  Transmission Date: 20111222
  Serious: Yes (Other)
  Sender: FDA-Public Use
  Company Number: 2011SP039344

PATIENT
  Age: 71 Year
  Sex: Female

DRUGS (10)
  1. ATARAX [Suspect]
     Indication: PREMEDICATION
     Dosage: 25 MG;QD;PO
     Route: 048
     Dates: start: 20110708, end: 20110711
  2. KLIPAL CODEINE [Concomitant]
  3. LODINE [Concomitant]
  4. IMMUNE GLOBULIN (HUMAN) [Concomitant]
  5. VIVAGLOBIN [Concomitant]
  6. OMEPRAZOLE [Concomitant]
  7. GAMMAGARD [Suspect]
     Indication: INCLUSION BODY MYOSITIS
     Dosage: 150 MG;QD;IV
     Route: 042
     Dates: start: 20110711, end: 20110711
  8. KIOVIG  /00025201/ [Concomitant]
  9. LEVOTHYROXINE SODIUM [Concomitant]
  10. DESLORATADINE [Suspect]
     Indication: PREMEDICATION
     Dosage: ;PO
     Route: 048
     Dates: start: 20110708, end: 20110711

REACTIONS (5)
  - DYSPHAGIA [None]
  - TOXIC SKIN ERUPTION [None]
  - ABDOMINAL PAIN [None]
  - DERMATITIS BULLOUS [None]
  - HYPERSENSITIVITY [None]
